FAERS Safety Report 9375477 (Version 2)
Quarter: 2013Q3

REPORT INFORMATION
  Report Type: Spontaneous
  Country: IL (occurrence: IL)
  Receive Date: 20130628
  Receipt Date: 20130723
  Transmission Date: 20140515
  Serious: Yes (Other)
  Sender: FDA-Public Use
  Company Number: IL-AMGEN-GBRSP2013044147

PATIENT
  Age: 62 Year
  Sex: Female
  Weight: 60 kg

DRUGS (5)
  1. NPLATE [Suspect]
     Indication: IMMUNE THROMBOCYTOPENIC PURPURA
     Dosage: 60 MUG, UNK
     Route: 058
     Dates: start: 20130611
  2. OSMO ADALAT [Concomitant]
     Dosage: 30 MG, QD
  3. CARDILOC [Concomitant]
     Dosage: 2.5 MG, QD
  4. LOSARTAN POTASSIUM [Concomitant]
     Indication: HYPERTENSION
     Dosage: 5 MG, QD
  5. ZOMERA [Concomitant]
     Dosage: 5 MG, QD

REACTIONS (2)
  - Platelet count abnormal [Not Recovered/Not Resolved]
  - Cough [Not Recovered/Not Resolved]
